FAERS Safety Report 5235630-0 (Version None)
Quarter: 2007Q1

REPORT INFORMATION
  Report Type: 
  Country: None (occurrence: None)
  Receive Date: 20070212
  Receipt Date: 20070129
  Transmission Date: 20070707
  Serious: Yes (Other)
  Sender: FDA-Public Use
  Company Number: US-ROCHE-480811

PATIENT
  Age: 45 Year
  Sex: Male
  Weight: 130.2 kg

DRUGS (5)
  1. PEGASYS [Suspect]
     Route: 065
     Dates: start: 20060204, end: 20061227
  2. RIBAVIRIN [Suspect]
     Dosage: DOSAGE REGIMEN: 3 AM / 3 PM.
     Route: 048
     Dates: start: 20060204, end: 20061227
  3. CELEBREX [Concomitant]
     Indication: ARTHRITIS
     Dosage: ON THERAPY FOR APPROXIMATELY 5-7 YEARS.
     Route: 048
  4. NEXIUM [Concomitant]
     Dosage: ON THERAPY FOR APPROXIMATELY 6 YEARS.
     Route: 048
  5. REQUIP [Concomitant]
     Dates: start: 20061115

REACTIONS (4)
  - ARTHRITIS [None]
  - DIABETES MELLITUS [None]
  - LOSS OF CONSCIOUSNESS [None]
  - THERAPEUTIC PRODUCT INEFFECTIVE [None]
